FAERS Safety Report 7267046-X (Version None)
Quarter: 2011Q1

REPORT INFORMATION
  Report Type: 
  Country: None (occurrence: None)
  Receive Date: 20110201
  Receipt Date: 20110119
  Transmission Date: 20110831
  Serious: Yes (Hospitalization)
  Sender: FDA-Public Use
  Company Number: PHHY2011PT02137

PATIENT
  Sex: Male

DRUGS (2)
  1. SUTENT [Suspect]
     Indication: METASTATIC RENAL CELL CARCINOMA
     Dosage: 50 MG (4 WEEKS ON, 2 WEEKS OFF)
     Route: 048
     Dates: start: 20100907, end: 20101116
  2. ZOMETA [Suspect]
     Indication: METASTASES TO BONE
     Dosage: 4 MG, QMO
     Route: 042
     Dates: start: 20101019, end: 20101216

REACTIONS (4)
  - DYSPEPSIA [None]
  - OESOPHAGITIS [None]
  - VOMITING [None]
  - HICCUPS [None]
